FAERS Safety Report 14112166 (Version 2)
Quarter: 2017Q4

REPORT INFORMATION
  Report Type: Spontaneous
  Country: FR (occurrence: FR)
  Receive Date: 20171020
  Receipt Date: 20171106
  Transmission Date: 20180321
  Serious: Yes (Death)
  Sender: FDA-Public Use
  Company Number: FR-ABBVIE-17P-056-2134293-00

PATIENT
  Sex: Male
  Weight: 65 kg

DRUGS (2)
  1. VENETOCLAX. [Suspect]
     Active Substance: VENETOCLAX
     Indication: ACUTE MYELOID LEUKAEMIA
  2. VENETOCLAX. [Suspect]
     Active Substance: VENETOCLAX
     Indication: ACUTE LYMPHOCYTIC LEUKAEMIA
     Dosage: D1: 100MG D2: 200MG D3: 400MG D4: 600MG
     Route: 048
     Dates: start: 20170927, end: 20170930

REACTIONS (3)
  - Systemic candida [Fatal]
  - Off label use [Unknown]
  - Pancytopenia [Fatal]
